FAERS Safety Report 7250651-4 (Version None)
Quarter: 2011Q1

REPORT INFORMATION
  Report Type: 
  Country: None (occurrence: None)
  Receive Date: 20110118
  Receipt Date: 20110103
  Transmission Date: 20110831
  Serious: Yes (Hospitalization)
  Sender: FDA-Public Use
  Company Number: 1000018127

PATIENT
  Age: 36 Year
  Sex: Male

DRUGS (5)
  1. LEVOTHYROX (LEVOTHYROXINE SODIUM) (TABLETS) (LEVOTHYROXINE SODIUM) [Concomitant]
  2. ESCITALOPRAM [Suspect]
     Indication: DEPRESSION
     Dosage: 10 MG (10 MG,1 IN 1 D), ORAL
     Route: 048
     Dates: start: 20100901, end: 20101107
  3. LANSOPRAZOLE [Suspect]
     Dosage: 1 DF (1 DOSAGE FORMS, 1 IN 1 D), ORAL
     Route: 048
     Dates: start: 20101001, end: 20101107
  4. AMOXICILLIN [Concomitant]
  5. SOLUPRED (PREDNISOLONE) (PREDNISOLONE) [Concomitant]

REACTIONS (8)
  - OROPHARYNGEAL BLISTERING [None]
  - COUGH [None]
  - HAEMOPTYSIS [None]
  - IDIOPATHIC THROMBOCYTOPENIC PURPURA [None]
  - WHITE BLOOD CELL COUNT DECREASED [None]
  - HAEMOGLOBIN DECREASED [None]
  - IRON DEFICIENCY [None]
  - BLOOD BLISTER [None]
